FAERS Safety Report 7275345-0 (Version None)
Quarter: 2011Q1

REPORT INFORMATION
  Report Type: 
  Country: None (occurrence: None)
  Receive Date: 20110204
  Receipt Date: 20110125
  Transmission Date: 20110831
  Serious: Yes (Hospitalization, Other)
  Sender: FDA-Public Use
  Company Number: US-BAYER-2011-008811

PATIENT
  Sex: Female

DRUGS (1)
  1. MIRENA [Suspect]
     Indication: OVARIAN CYST
     Dosage: 20 ?G/D, CONT
     Route: 015
     Dates: start: 20100201

REACTIONS (7)
  - VIITH NERVE PARALYSIS [None]
  - SENSATION OF PRESSURE [None]
  - MIGRAINE [None]
  - LYMPHADENECTOMY [None]
  - HEADACHE [None]
  - APHONIA [None]
  - FACIAL PAIN [None]
